FAERS Safety Report 24621100 (Version 1)
Quarter: 2024Q4

REPORT INFORMATION
  Report Type: Spontaneous
  Country: US (occurrence: None)
  Receive Date: 20241114
  Receipt Date: 20241114
  Transmission Date: 20250115
  Serious: Yes (Death)
  Sender: Public
  Company Number: None

PATIENT
  Age: 76 Year
  Sex: Male
  Weight: 126.7 kg

DRUGS (20)
  1. DAPTOMYCIN [Suspect]
     Active Substance: DAPTOMYCIN
     Indication: Bacterial sepsis
     Dates: start: 20240826, end: 20240826
  2. ASPIRIN [Concomitant]
     Active Substance: ASPIRIN
  3. ATORVASTATIN [Concomitant]
     Active Substance: ATORVASTATIN
  4. budesonide-formotorol [Concomitant]
  5. FOLIC ACID [Concomitant]
     Active Substance: FOLIC ACID
  6. HYDROXYCHLOROQUINE [Concomitant]
     Active Substance: HYDROXYCHLOROQUINE
  7. NOVOLOG [Concomitant]
     Active Substance: INSULIN ASPART
  8. LANTUS [Concomitant]
     Active Substance: INSULIN GLARGINE
  9. MAGNESIUM OXIDE [Concomitant]
     Active Substance: MAGNESIUM OXIDE
  10. METHOTREXATE [Concomitant]
     Active Substance: METHOTREXATE
  11. METOPROLOL SUCCINATE [Concomitant]
     Active Substance: METOPROLOL SUCCINATE
  12. PREDNISONE [Concomitant]
     Active Substance: PREDNISONE
  13. OZEMPIC [Concomitant]
     Active Substance: SEMAGLUTIDE
  14. SPIRONOLACTONE [Concomitant]
     Active Substance: SPIRONOLACTONE
  15. rivaroxaban 15 [Concomitant]
  16. LATANOPROST [Concomitant]
     Active Substance: LATANOPROST
  17. METFORMIN [Concomitant]
     Active Substance: METFORMIN HYDROCHLORIDE
  18. NITROFURANTOIN [Concomitant]
     Active Substance: NITROFURANTOIN
  19. PENICILLIN [Concomitant]
     Active Substance: PENICILLIN
  20. Sulfa Antibiotics [Concomitant]

REACTIONS (5)
  - Pruritus [None]
  - Dyspnoea [None]
  - Dyspnoea [None]
  - Loss of consciousness [None]
  - Cardio-respiratory arrest [None]

NARRATIVE: CASE EVENT DATE: 20240826
